FAERS Safety Report 4316276-5 (Version None)
Quarter: 2004Q1

REPORT INFORMATION
  Report Type: 
  Country: None (occurrence: None)
  Receive Date: 20040310
  Receipt Date: 20040112
  Transmission Date: 20041129
  Serious: Yes (Other)
  Sender: FDA-Public Use
  Company Number: HQWYE278613JAN04

PATIENT
  Age: 58 Year
  Sex: Female
  Weight: 70.37 kg

DRUGS (6)
  1. PROTONIX [Suspect]
     Indication: GASTROOESOPHAGEAL REFLUX DISEASE
     Dosage: 40 MG 2 X PER 1 DAY ORAL
     Route: 048
     Dates: start: 20040110, end: 20040111
  2. DILANTIN [Suspect]
     Indication: EPILEPSY
     Dosage: 200 MG 1 X PER DAY
  3. PHENOBARBITAL TAB [Concomitant]
  4. SEREVENT [Concomitant]
  5. PREVACHOL (PRAVASTATIN SODIUM) [Concomitant]
  6. MULTIVITAMINS (ASCORBIC ACID/ERGOCALCIFEROL/FOLIC ACID/NICOTINAMIDE/PA [Concomitant]

REACTIONS (3)
  - DISSOCIATION [None]
  - DRUG INTERACTION [None]
  - HEADACHE [None]
